FAERS Safety Report 15526299 (Version 3)
Quarter: 2019Q1

REPORT INFORMATION
  Report Type: Spontaneous
  Country: US (occurrence: US)
  Receive Date: 20181018
  Receipt Date: 20190129
  Transmission Date: 20190417
  Serious: Yes (Other)
  Sender: FDA-Public Use
  Company Number: US-PFIZER INC-2018415882

PATIENT
  Age: 60 Year
  Sex: Male

DRUGS (7)
  1. VIAGRA [Suspect]
     Active Substance: SILDENAFIL CITRATE
     Indication: ERECTILE DYSFUNCTION
     Dosage: 100 MG, AS NEEDED
     Dates: start: 2013
  2. COLCRYS [Concomitant]
     Active Substance: COLCHICINE
     Indication: GOUT
     Dosage: 0.6 MG, DAILY
     Dates: start: 1984
  3. MELOXICAM. [Concomitant]
     Active Substance: MELOXICAM
     Indication: GOUT
     Dosage: 15 MG, DAILY
     Dates: start: 2018
  4. ASPIRIN [ACETYLSALICYLIC ACID] [Concomitant]
     Active Substance: ASPIRIN
     Dosage: 81 MG, DAILY
     Dates: start: 2008
  5. ALLOPURINOL. [Concomitant]
     Active Substance: ALLOPURINOL
     Indication: GOUT
     Dosage: 300 MG, DAILY (THREE 100 MG TABLETS DAILY)
     Dates: start: 2018
  6. SIMVASTATIN. [Concomitant]
     Active Substance: SIMVASTATIN
     Dosage: 40 MG, DAILY
     Dates: start: 2008
  7. VITAMIN C [Concomitant]
     Active Substance: ASCORBIC ACID
     Dosage: 500 MG, DAILY
     Dates: start: 2010

REACTIONS (3)
  - Brain oedema [Unknown]
  - Cerebrovascular accident [Unknown]
  - Peripheral swelling [Unknown]
